FAERS Safety Report 7930978-0 (Version None)
Quarter: 2011Q4

REPORT INFORMATION
  Report Type: 
  Country: None (occurrence: None)
  Receive Date: 20111121
  Receipt Date: 20111114
  Transmission Date: 20120403
  Serious: Yes (Hospitalization)
  Sender: FDA-Public Use
  Company Number: US-ABBOTT-11P-163-0867071-00

PATIENT
  Sex: Female
  Weight: 81.72 kg

DRUGS (5)
  1. HUMIRA [Suspect]
     Indication: CROHN'S DISEASE
     Route: 058
     Dates: start: 20081008, end: 20110610
  2. FENTANYL [Concomitant]
     Indication: PAIN
     Dosage: PATCH
  3. OXYCODONE HCL [Concomitant]
     Indication: PAIN
  4. IMURAN [Concomitant]
     Indication: PRODUCT USED FOR UNKNOWN INDICATION
     Dates: start: 20071218, end: 20110610
  5. PENTASA [Concomitant]
     Indication: CROHN'S DISEASE
     Dosage: DAILY DOSE: 4000MG
     Dates: start: 20071220

REACTIONS (4)
  - LEUKAEMIA [None]
  - FATIGUE [None]
  - ANAEMIA [None]
  - PROCEDURAL COMPLICATION [None]
